FAERS Safety Report 7732871-5 (Version None)
Quarter: 2011Q3

REPORT INFORMATION
  Report Type: 
  Country: None (occurrence: None)
  Receive Date: 20110902
  Receipt Date: 20110902
  Transmission Date: 20111222
  Serious: No
  Sender: FDA-Public Use
  Company Number: None

PATIENT

DRUGS (2)
  1. BENZTROPINE MESYLATE [Suspect]
  2. FLUPHENAZINE [Suspect]

REACTIONS (1)
  - LIVER DISORDER [None]
